FAERS Safety Report 18847356 (Version 1)
Quarter: 2021Q1

REPORT INFORMATION
  Report Type: Report from Study
  Country: US (occurrence: US)
  Receive Date: 20210203
  Receipt Date: 20210203
  Transmission Date: 20210419
  Serious: No
  Sender: FDA-Public Use
  Company Number: US-EXELIXIS-CABO-20034708

PATIENT
  Age: 74 Year
  Sex: Male

DRUGS (1)
  1. CABOMETYX [Suspect]
     Active Substance: CABOZANTINIB S-MALATE
     Indication: RENAL CANCER
     Dosage: 60 MG, 5 DAYS A WEEK (MON?FRI)
     Route: 048
     Dates: start: 20201027

REACTIONS (5)
  - Memory impairment [Unknown]
  - Inappropriate schedule of product administration [Unknown]
  - Rash macular [Unknown]
  - Stomatitis [Unknown]
  - Epistaxis [Recovered/Resolved]

NARRATIVE: CASE EVENT DATE: 202010
